FAERS Safety Report 17960636 (Version 1)
Quarter: 2020Q2

REPORT INFORMATION
  Report Type: Report from Study
  Country: BR (occurrence: BR)
  Receive Date: 20200629
  Receipt Date: 20200629
  Transmission Date: 20200714
  Serious: Yes (Death)
  Sender: FDA-Public Use
  Company Number: BR-TAKEDA-2020TUS011014

PATIENT
  Age: 39 Year
  Sex: Female

DRUGS (2)
  1. URSACOL [Concomitant]
     Active Substance: URSODIOL
     Dosage: 150 MILLIGRAM, QD
  2. VEDOLIZUMAB [Suspect]
     Active Substance: VEDOLIZUMAB
     Indication: CROHN^S DISEASE
     Dosage: 300 MILLIGRAM
     Route: 042

REACTIONS (3)
  - Frequent bowel movements [Unknown]
  - Shock haemorrhagic [Fatal]
  - Diarrhoea [Unknown]

NARRATIVE: CASE EVENT DATE: 201909
